FAERS Safety Report 15156403 (Version 2)
Quarter: 2018Q4

REPORT INFORMATION
  Report Type: Report from Study
  Country: None (occurrence: GR)
  Receive Date: 20180717
  Receipt Date: 20181017
  Transmission Date: 20190204
  Serious: Yes (Death, Life-Threatening, Hospitalization)
  Sender: FDA-Public Use
  Company Number: GR-ABBVIE-17P-066-2152371-00

PATIENT
  Age: 73 Year
  Sex: Male
  Weight: 88 kg

DRUGS (14)
  1. LOPRESSOR [Concomitant]
     Active Substance: METOPROLOL TARTRATE
     Indication: CARDIAC VALVE DISEASE
     Route: 048
     Dates: start: 201605, end: 20171105
  2. BACTRIMEL [Concomitant]
     Active Substance: SULFAMETHOXAZOLE\TRIMETHOPRIM
     Indication: PROPHYLAXIS
  3. VALTREX [Concomitant]
     Active Substance: VALACYCLOVIR HYDROCHLORIDE
     Indication: ANTIVIRAL PROPHYLAXIS
     Route: 048
     Dates: start: 20170830, end: 20171105
  4. PENRAZOL [Concomitant]
     Indication: GASTRIC DISORDER
     Route: 048
     Dates: start: 20170830, end: 20171105
  5. BACTRIMEL [Concomitant]
     Active Substance: SULFAMETHOXAZOLE\TRIMETHOPRIM
     Indication: BACTERIAL INFECTION
     Dosage: DOSE: 800/160 MG
     Route: 048
     Dates: start: 20170830, end: 20171105
  6. TRANSAMINE [Concomitant]
     Indication: PROPHYLAXIS
  7. COAPROVEL [Concomitant]
     Active Substance: HYDROCHLOROTHIAZIDE\IRBESARTAN
     Indication: CARDIAC VALVE DISEASE
     Dosage: DOSE: 150/12.5 MG
     Route: 048
     Dates: start: 201605, end: 20171105
  8. ALLOPURINOL. [Concomitant]
     Active Substance: ALLOPURINOL
     Indication: PROPHYLAXIS
     Route: 048
     Dates: start: 20170830, end: 20171105
  9. VENETOCLAX. [Suspect]
     Active Substance: VENETOCLAX
     Indication: ACUTE MYELOID LEUKAEMIA
     Route: 048
     Dates: start: 20171102, end: 20171102
  10. CYTARABINE. [Suspect]
     Active Substance: CYTARABINE
     Indication: ACUTE MYELOID LEUKAEMIA
     Dosage: DAYS 1-10 OF EACH CYCLE
     Route: 058
     Dates: start: 20171102, end: 20171102
  11. TRANSAMINE [Concomitant]
     Indication: THROMBOCYTOPENIA
     Route: 048
     Dates: start: 20170830, end: 20171105
  12. NORMAL SALINE [Concomitant]
     Active Substance: SODIUM CHLORIDE
     Indication: PROPHYLAXIS
     Route: 042
     Dates: start: 20171024
  13. TRANSAMINE [Concomitant]
     Indication: ACUTE MYELOID LEUKAEMIA
  14. PENRAZOL [Concomitant]
     Indication: PROPHYLAXIS

REACTIONS (3)
  - Tumour lysis syndrome [Fatal]
  - Pulmonary alveolar haemorrhage [Fatal]
  - Pneumonia [Fatal]

NARRATIVE: CASE EVENT DATE: 20171102
